FAERS Safety Report 14350041 (Version 2)
Quarter: 2018Q1

REPORT INFORMATION
  Report Type: Spontaneous
  Country: FR (occurrence: FR)
  Receive Date: 20180104
  Receipt Date: 20180216
  Transmission Date: 20180509
  Serious: Yes (Hospitalization)
  Sender: FDA-Public Use
  Company Number: FR-AUROBINDO-AUR-APL-2017-48717

PATIENT
  Age: 80 Year
  Sex: Female
  Weight: 50 kg

DRUGS (2)
  1. CLINDAMYCIN. [Suspect]
     Active Substance: CLINDAMYCIN
     Indication: INFECTION
     Route: 048
     Dates: start: 20171029, end: 20171109
  2. LEVOFLOXACIN ARROW LAB 500MG FILM COATED TABLETS [Suspect]
     Active Substance: LEVOFLOXACIN
     Indication: INFECTION
     Route: 048
     Dates: start: 20171029, end: 20171109

REACTIONS (2)
  - Purpura [Recovering/Resolving]
  - Rash erythematous [Recovering/Resolving]

NARRATIVE: CASE EVENT DATE: 20171103
